FAERS Safety Report 9370078 (Version 1)
Quarter: 2013Q2

REPORT INFORMATION
  Report Type: Spontaneous
  Country: CH (occurrence: CH)
  Receive Date: 20130626
  Receipt Date: 20130626
  Transmission Date: 20140414
  Serious: Yes (Life-Threatening)
  Sender: FDA-Public Use
  Company Number: CH-BAYER-2013-077939

PATIENT
  Age: 43 Year
  Sex: Male
  Weight: 63 kg

DRUGS (6)
  1. STIVARGA [Suspect]
     Indication: COLON CANCER
     Dosage: 160 MG, QD
     Route: 048
     Dates: start: 20130503, end: 20130516
  2. PALLADON [Concomitant]
     Dosage: 264 MG, UNK
     Route: 048
     Dates: start: 20120827
  3. FENTANYL CITRATE [Concomitant]
     Dosage: 1600 ?G, QD
     Route: 048
     Dates: start: 20120827
  4. LYRICA [Concomitant]
     Dosage: 300 MG, QD
     Route: 048
     Dates: start: 20120827
  5. NOVALGIN [Concomitant]
     Dosage: 3000 MG, UNK
     Route: 048
     Dates: start: 20130118
  6. DAFALGAN [Concomitant]
     Dosage: 3 MG, QD
     Route: 048

REACTIONS (4)
  - Muscle abscess [Recovering/Resolving]
  - Necrotising fasciitis [Recovering/Resolving]
  - Intestinal perforation [Not Recovered/Not Resolved]
  - Renal failure chronic [Recovering/Resolving]
